FAERS Safety Report 8800218 (Version 1)
Quarter: 2012Q4

REPORT INFORMATION
  Report Type: 
  Country: US (occurrence: US)
  Receive Date: 20120921
  Receipt Date: 20120921
  Transmission Date: 20130627
  Serious: Yes (Hospitalization, Other)
  Sender: FDA-Public Use
  Company Number: US-JNJFOC-20120904784

PATIENT
  Sex: Female
  Weight: 63.5 kg

DRUGS (5)
  1. INVEGA [Suspect]
     Indication: SCHIZOPHRENIA
     Route: 048
     Dates: end: 2012
  2. INVEGA SUSTENNA [Suspect]
     Indication: SCHIZOPHRENIA
     Route: 030
     Dates: start: 201207
  3. ZOLOFT [Concomitant]
     Indication: ANTIDEPRESSANT THERAPY
     Route: 048
  4. KLONOPIN [Concomitant]
     Indication: ANXIETY
     Route: 048
  5. KLONOPIN [Concomitant]
     Indication: PARANOIA
     Route: 048

REACTIONS (5)
  - Hypokinesia [Recovered/Resolved]
  - Hallucination [Recovered/Resolved]
  - Jaw disorder [Recovered/Resolved]
  - Loss of consciousness [Recovered/Resolved]
  - Expressive language disorder [Recovered/Resolved]
